FAERS Safety Report 16420192 (Version 1)
Quarter: 2019Q2

REPORT INFORMATION
  Report Type: Spontaneous
  Country: US (occurrence: US)
  Receive Date: 20190505
  Receipt Date: 20190505
  Transmission Date: 20190711
  Serious: No
  Sender: FDA-Public Use
  Company Number: None

PATIENT
  Age: 71 Year
  Sex: Male
  Weight: 167.83 kg

DRUGS (9)
  1. BYSTOLIC [Concomitant]
     Active Substance: NEBIVOLOL HYDROCHLORIDE
  2. METFORMIN [Concomitant]
     Active Substance: METFORMIN HYDROCHLORIDE
  3. VANCOMYCIN 1.5MG/250ML D5W MIX [Suspect]
     Active Substance: VANCOMYCIN
     Indication: CELLULITIS
     Dates: start: 20190417, end: 20190422
  4. CLOMIPENE [Concomitant]
  5. SYNTHROID [Concomitant]
     Active Substance: LEVOTHYROXINE SODIUM
  6. HYDROCORTUSIBE CREAM 1% [Concomitant]
  7. CIALIS [Concomitant]
     Active Substance: TADALAFIL
  8. OMEPRAZOLE. [Concomitant]
     Active Substance: OMEPRAZOLE
  9. DIPHENHYDRAMINE. [Concomitant]
     Active Substance: DIPHENHYDRAMINE

REACTIONS (3)
  - Rash [None]
  - Rash generalised [None]
  - Urticaria [None]

NARRATIVE: CASE EVENT DATE: 20190424
